FAERS Safety Report 7361794-9 (Version None)
Quarter: 2011Q1

REPORT INFORMATION
  Report Type: 
  Country: None (occurrence: None)
  Receive Date: 20110315
  Receipt Date: 20110315
  Transmission Date: 20110831
  Serious: Yes (Life-Threatening, Hospitalization, Congenital Anomaly, Other)
  Sender: FDA-Public Use
  Company Number: None

PATIENT
  Sex: Female
  Weight: 68.2 kg

DRUGS (2)
  1. MAXZIDE [Concomitant]
  2. CHLORHEXIDINE GLUCONATE [Suspect]
     Indication: SURGERY
     Dosage: 500 MG ONCE 061 SKIN PREP
     Dates: start: 20100211

REACTIONS (18)
  - EPISTAXIS [None]
  - THROMBOSIS [None]
  - SPEECH DISORDER [None]
  - HYPERHIDROSIS [None]
  - OCULAR HYPERAEMIA [None]
  - RASH MACULAR [None]
  - SKIN DISCOLOURATION [None]
  - RASH [None]
  - PALPITATIONS [None]
  - PRURITUS [None]
  - HYPERSENSITIVITY [None]
  - URTICARIA [None]
  - HEART RATE INCREASED [None]
  - HYPERTENSION [None]
  - DYSPNOEA [None]
  - DIZZINESS [None]
  - HYPOVENTILATION [None]
  - NO THERAPEUTIC RESPONSE [None]
